FAERS Safety Report 16763883 (Version 3)
Quarter: 2019Q4

REPORT INFORMATION
  Report Type: Spontaneous
  Country: JP (occurrence: JP)
  Receive Date: 20190902
  Receipt Date: 20191212
  Transmission Date: 20200122
  Serious: Yes (Hospitalization, Other)
  Sender: FDA-Public Use
  Company Number: JP-BRISTOL-MYERS SQUIBB COMPANY-BMS-2019-076922

PATIENT
  Age: 74 Year
  Sex: Female
  Weight: 50.5 kg

DRUGS (4)
  1. OPDIVO [Suspect]
     Active Substance: NIVOLUMAB
     Indication: RENAL CELL CARCINOMA
     Dosage: 240 MILLIGRAM
     Route: 041
     Dates: start: 20181128
  2. YERVOY [Suspect]
     Active Substance: IPILIMUMAB
     Indication: RENAL CELL CARCINOMA
     Dosage: 1 MILLIGRAM/KILOGRAM
     Route: 041
     Dates: start: 20181128, end: 20190205
  3. PAZOPANIB HYDROCHLORIDE [Suspect]
     Active Substance: PAZOPANIB HYDROCHLORIDE
     Indication: PRODUCT USED FOR UNKNOWN INDICATION
     Dosage: UNK
     Route: 065
     Dates: start: 20190624, end: 20190709
  4. OPDIVO [Suspect]
     Active Substance: NIVOLUMAB
     Indication: PRODUCT USED FOR UNKNOWN INDICATION
     Dosage: UNK
     Route: 065
     Dates: start: 20190226

REACTIONS (13)
  - Anaemia [Unknown]
  - Gastrointestinal haemorrhage [Not Recovered/Not Resolved]
  - Hepatic function abnormal [Recovering/Resolving]
  - Enterocolitis [Unknown]
  - Renal impairment [Unknown]
  - Constipation [Unknown]
  - Hyperbilirubinaemia [Not Recovered/Not Resolved]
  - Jejunal ulcer [Unknown]
  - Dehydration [Unknown]
  - Diarrhoea [Unknown]
  - Liver injury [Unknown]
  - Duodenal ulcer [Unknown]
  - Platelet count decreased [Unknown]

NARRATIVE: CASE EVENT DATE: 20190709
